APPROVED DRUG PRODUCT: GEMCITABINE HYDROCHLORIDE
Active Ingredient: GEMCITABINE HYDROCHLORIDE
Strength: 1GM/26.3ML (38MG/ML)
Dosage Form/Route: INJECTABLE;INJECTION
Application: A206776 | Product #002
Applicant: APOTEX INC
Approved: May 23, 2017 | RLD: No | RS: No | Type: DISCN